FAERS Safety Report 9501120 (Version 1)
Quarter: 2013Q3

REPORT INFORMATION
  Report Type: Spontaneous
  Country: AU (occurrence: AU)
  Receive Date: 20130905
  Receipt Date: 20130905
  Transmission Date: 20140515
  Serious: Yes (Other)
  Sender: FDA-Public Use
  Company Number: AU-PURDUE-USA-2013-0105964

PATIENT
  Age: 85 Year
  Sex: Female

DRUGS (1)
  1. OXYCONTIN TABLETS [Suspect]
     Indication: BACK PAIN
     Dosage: 10 MG, DAILY
     Route: 048

REACTIONS (1)
  - Delirium [Recovered/Resolved]
